FAERS Safety Report 17278587 (Version 1)
Quarter: 2020Q1

REPORT INFORMATION
  Report Type: Spontaneous
  Country: GB (occurrence: GB)
  Receive Date: 20200116
  Receipt Date: 20200116
  Transmission Date: 20200409
  Serious: Yes (Life-Threatening, Hospitalization)
  Sender: FDA-Public Use
  Company Number: NVSC2020GB009263

PATIENT
  Age: 65 Year
  Sex: Male
  Weight: 71.66 kg

DRUGS (2)
  1. MONOPOST [Suspect]
     Active Substance: LATANOPROST
     Indication: ANGLE CLOSURE GLAUCOMA
     Dosage: 2 DRP, QD (ONE DROP NIGHT BOTH EYES )
     Route: 047
     Dates: start: 20170601
  2. SIMBRINZA [Suspect]
     Active Substance: BRIMONIDINE TARTRATE\BRINZOLAMIDE
     Indication: ANGLE CLOSURE GLAUCOMA
     Dosage: 2 DRP, QD (LEFT EYE) (1/12 MILLILITRE)
     Route: 047
     Dates: start: 20170601

REACTIONS (6)
  - Chest pain [Not Recovered/Not Resolved]
  - Blindness [Not Recovered/Not Resolved]
  - Eye pruritus [Not Recovered/Not Resolved]
  - Vision blurred [Not Recovered/Not Resolved]
  - Pruritus [Not Recovered/Not Resolved]
  - Eye pain [Not Recovered/Not Resolved]

NARRATIVE: CASE EVENT DATE: 20170601
